FAERS Safety Report 6242007-8 (Version None)
Quarter: 2009Q2

REPORT INFORMATION
  Report Type: 
  Country: None (occurrence: None)
  Receive Date: 20090622
  Receipt Date: 20090616
  Transmission Date: 20091009
  Serious: Yes (Other)
  Sender: FDA-Public Use
  Company Number: 2009SP013324

PATIENT
  Sex: Female

DRUGS (7)
  1. CLARITIN [Suspect]
     Indication: EYE PRURITUS
     Dosage: 10 MG; QD; PO
     Route: 048
     Dates: start: 20090518, end: 20090520
  2. CLARITIN [Suspect]
     Indication: POSTNASAL DRIP
     Dosage: 10 MG; QD; PO
     Route: 048
     Dates: start: 20090518, end: 20090520
  3. CLARITIN [Suspect]
     Indication: SNEEZING
     Dosage: 10 MG; QD; PO
     Route: 048
     Dates: start: 20090518, end: 20090520
  4. LEVOTHYROXINE SODIUM [Concomitant]
  5. SPIRONOLACTONE [Concomitant]
  6. MULTI-VITAMIN [Concomitant]
  7. ASCORBIC ACID [Concomitant]

REACTIONS (5)
  - DRY MOUTH [None]
  - LIP DRY [None]
  - LIP SWELLING [None]
  - RASH [None]
  - SWOLLEN TONGUE [None]
